FAERS Safety Report 23189954 (Version 2)
Quarter: 2023Q4

REPORT INFORMATION
  Report Type: Report from Study
  Country: CN (occurrence: None)
  Receive Date: 20231116
  Receipt Date: 20231123
  Transmission Date: 20240109
  Serious: Yes (Hospitalization)
  Sender: FDA-Public Use
  Company Number: CN-ROCHE-3455321

PATIENT
  Age: 53 Year
  Sex: Female
  Weight: 64.5 kg

DRUGS (12)
  1. PERTUZUMAB [Suspect]
     Active Substance: PERTUZUMAB
     Indication: Breast cancer
     Route: 041
     Dates: start: 20230209
  2. PERTUZUMAB [Suspect]
     Active Substance: PERTUZUMAB
     Route: 041
     Dates: start: 20230302, end: 20230413
  3. PERTUZUMAB [Suspect]
     Active Substance: PERTUZUMAB
     Dosage: C9D1
     Route: 041
     Dates: start: 20230829
  4. PERTUZUMAB [Suspect]
     Active Substance: PERTUZUMAB
     Dosage: C10D1
     Route: 041
     Dates: start: 20230919
  5. TRASTUZUMAB [Suspect]
     Active Substance: TRASTUZUMAB
     Indication: Breast cancer
     Dosage: THE FIRST CYCLE (C1)
     Route: 041
     Dates: start: 20230209
  6. TRASTUZUMAB [Suspect]
     Active Substance: TRASTUZUMAB
     Dosage: (C2-C4),C2D1-C4D1
     Route: 041
     Dates: start: 20230302, end: 20230413
  7. TRASTUZUMAB [Suspect]
     Active Substance: TRASTUZUMAB
     Dosage: C9D1
     Route: 041
     Dates: start: 20230829
  8. TRASTUZUMAB [Suspect]
     Active Substance: TRASTUZUMAB
     Dosage: C10D1
     Route: 041
     Dates: start: 20230919
  9. DOXORUBICIN HYDROCHLORIDE [Suspect]
     Active Substance: DOXORUBICIN HYDROCHLORIDE
     Indication: Breast cancer
     Dosage: C5D1-C8D1
     Route: 041
     Dates: start: 20230602, end: 20230808
  10. CYCLOPHOSPHAMIDE [Suspect]
     Active Substance: CYCLOPHOSPHAMIDE
     Indication: Breast cancer
     Dosage: C5D1-C8D1
     Route: 041
     Dates: start: 20230602, end: 20230808
  11. DOCETAXEL [Suspect]
     Active Substance: DOCETAXEL\DOCETAXEL ANHYDROUS
     Indication: Breast cancer
     Route: 041
     Dates: start: 20230209
  12. DOCETAXEL [Suspect]
     Active Substance: DOCETAXEL\DOCETAXEL ANHYDROUS
     Dosage: C2D1-C4D1
     Route: 041
     Dates: start: 20230302, end: 20230413

REACTIONS (2)
  - Alanine aminotransferase increased [Recovering/Resolving]
  - Aspartate aminotransferase increased [Not Recovered/Not Resolved]

NARRATIVE: CASE EVENT DATE: 20231030
